FAERS Safety Report 8926116 (Version 2)
Quarter: 2013Q1

REPORT INFORMATION
  Report Type: Spontaneous
  Country: CA (occurrence: CA)
  Receive Date: 20121127
  Receipt Date: 20130326
  Transmission Date: 20140127
  Serious: Yes (Hospitalization)
  Sender: FDA-Public Use
  Company Number: CA-AMGEN-CANSP2012069610

PATIENT
  Age: 67 Year
  Sex: Male
  Weight: 100 kg

DRUGS (8)
  1. ENBREL [Suspect]
     Indication: RHEUMATOID ARTHRITIS
     Dosage: UNK, QWK
     Route: 058
     Dates: start: 20081125
  2. METFORMIN [Concomitant]
     Dosage: UNK
  3. GLYBURIDE [Concomitant]
     Dosage: 55 MG, UNK
  4. VALSARTAN [Concomitant]
     Dosage: 80 MG, UNK
  5. OMEGA 3                            /01334101/ [Concomitant]
     Dosage: UNK
  6. REACTIN [Concomitant]
     Dosage: UNK
  7. FENOFIBRAT [Concomitant]
     Dosage: UNK
  8. PIOGLITAZONE [Concomitant]
     Dosage: UNK

REACTIONS (2)
  - Myocardial infarction [Recovered/Resolved]
  - Leukopenia [Recovered/Resolved]
